FAERS Safety Report 6656871-1 (Version None)
Quarter: 2010Q1

REPORT INFORMATION
  Report Type: 
  Country: None (occurrence: None)
  Receive Date: 20100329
  Receipt Date: 20100329
  Transmission Date: 20100710
  Serious: Yes (Life-Threatening)
  Sender: FDA-Public Use
  Company Number: None

PATIENT
  Age: 47 Day
  Sex: Male
  Weight: 96.6162 kg

DRUGS (2)
  1. SAVELLA [Suspect]
     Indication: FIBROMYALGIA
     Dosage: 50 MG TABLET 1 X DAY PO
     Route: 048
     Dates: start: 20091214, end: 20100210
  2. SAVELLA [Suspect]
     Indication: PAIN
     Dosage: 50 MG TABLET 1 X DAY PO
     Route: 048
     Dates: start: 20091214, end: 20100210

REACTIONS (5)
  - BLOOD PRESSURE INCREASED [None]
  - DRUG INEFFECTIVE [None]
  - FEELING ABNORMAL [None]
  - HEART RATE INCREASED [None]
  - PRODUCT QUALITY ISSUE [None]
